FAERS Safety Report 4628210-9 (Version None)
Quarter: 2005Q2

REPORT INFORMATION
  Report Type: 
  Country: None (occurrence: None)
  Receive Date: 20050401
  Receipt Date: 20050323
  Transmission Date: 20051028
  Serious: Yes (Hospitalization, Other)
  Sender: FDA-Public Use
  Company Number: 2005038390

PATIENT
  Age: 82 Year
  Sex: Female
  Weight: 90.7194 kg

DRUGS (7)
  1. CELEBREX [Suspect]
     Indication: NEUROPATHY
  2. NEURONTIN [Suspect]
     Indication: NEUROPATHY
     Dosage: 100 MG; 200 MG
  3. BEXTRA [Suspect]
     Indication: NEUROPATHY
  4. BENGAY (MENTHOL) [Suspect]
     Indication: ARTHRALGIA
  5. BENGAY (MENTHOL) [Suspect]
     Indication: CARPAL TUNNEL SYNDROME
  6. ACETAMINOPHEN [Concomitant]
  7. ANALGESICS (ANALGESICS) [Concomitant]

REACTIONS (9)
  - CARPAL TUNNEL SYNDROME [None]
  - CATARACT [None]
  - KNEE OPERATION [None]
  - NEUROPATHY PERIPHERAL [None]
  - POOR PERIPHERAL CIRCULATION [None]
  - POST PROCEDURAL COMPLICATION [None]
  - STAPHYLOCOCCAL INFECTION [None]
  - STREPTOCOCCAL INFECTION [None]
  - SURGERY [None]
